FAERS Safety Report 22267772 (Version 1)
Quarter: 2023Q2

REPORT INFORMATION
  Report Type: Spontaneous
  Country: US (occurrence: US)
  Receive Date: 20230430
  Receipt Date: 20230430
  Transmission Date: 20230721
  Serious: No
  Sender: FDA-Public Use
  Company Number: US-GSK-US2023058879

PATIENT
  Age: 72 Year
  Sex: Male

DRUGS (3)
  1. NUCALA [Suspect]
     Active Substance: MEPOLIZUMAB
     Indication: Nasal polyps
     Dosage: 100 MG INJECTED TO THE STOMACH
     Dates: start: 202102
  2. GUAIFENESIN [Concomitant]
     Active Substance: GUAIFENESIN
     Indication: Sinus polyp
     Dosage: 2 PILLS (UNKNOWN MG)
     Dates: start: 20030101
  3. AMPHOTERICIN B [Concomitant]
     Active Substance: AMPHOTERICIN B
     Indication: Sinusitis
     Dosage: 400 MG IRRIGATION OF THE IRRIGATION
     Dates: start: 20030101

REACTIONS (2)
  - Exposure via skin contact [Unknown]
  - Drug ineffective [Unknown]

NARRATIVE: CASE EVENT DATE: 20230421
